FAERS Safety Report 6696103-1 (Version None)
Quarter: 2010Q2

REPORT INFORMATION
  Report Type: 
  Country: None (occurrence: None)
  Receive Date: 20100426
  Receipt Date: 20100416
  Transmission Date: 20101027
  Serious: Yes (Hospitalization)
  Sender: FDA-Public Use
  Company Number: JP-ASTRAZENECA-2007AP00902

PATIENT
  Age: 64 Year
  Sex: Male
  Weight: 77.3 kg

DRUGS (18)
  1. MEROPEN [Suspect]
     Indication: PYREXIA
     Route: 041
     Dates: start: 20050727, end: 20050801
  2. THIENAM [Suspect]
     Indication: PYREXIA
     Route: 041
     Dates: start: 20050722, end: 20050727
  3. LOXOPROFEN SODIUM [Concomitant]
  4. CIPROFLOXACIN [Concomitant]
  5. GANCICLOVIR [Concomitant]
  6. MUCOSTA [Concomitant]
     Route: 048
     Dates: end: 20050817
  7. BACTA [Concomitant]
     Route: 048
  8. GRAN [Concomitant]
     Indication: LEUKOPENIA
     Route: 058
     Dates: start: 20050722, end: 20050728
  9. AMIKACIN SULPHATE [Concomitant]
     Indication: PYREXIA
     Route: 041
     Dates: start: 20050725, end: 20050802
  10. MYSLEE [Concomitant]
     Indication: INSOMNIA
     Route: 048
     Dates: start: 20050729, end: 20050802
  11. CYCLOPHOSPHAMIDE [Concomitant]
     Indication: CHEMOTHERAPY
  12. DOXORUBICIN HCL [Concomitant]
     Indication: CHEMOTHERAPY
  13. VINCRISTINE SULFATE [Concomitant]
     Indication: CHEMOTHERAPY
  14. PREDNISOLONE [Concomitant]
     Indication: CHEMOTHERAPY
  15. RITUXIMAB [Concomitant]
     Indication: CHEMOTHERAPY
  16. ETOPOSIDE [Concomitant]
     Indication: CHEMOTHERAPY
  17. CYTARABINE [Concomitant]
     Indication: CHEMOTHERAPY
  18. DEXAMETHASONE SODIUM PHOSPHATE [Concomitant]
     Indication: CHEMOTHERAPY

REACTIONS (1)
  - DRUG RASH WITH EOSINOPHILIA AND SYSTEMIC SYMPTOMS [None]
